FAERS Safety Report 11906959 (Version 2)
Quarter: 2016Q1

REPORT INFORMATION
  Report Type: Spontaneous
  Country: US (occurrence: US)
  Receive Date: 20160111
  Receipt Date: 20160114
  Transmission Date: 20160526
  Serious: No
  Sender: FDA-Public Use
  Company Number: PHEH2016US000844

PATIENT
  Sex: Female

DRUGS (1)
  1. EXELON PATCH [Suspect]
     Active Substance: RIVASTIGMINE
     Indication: PRODUCT USED FOR UNKNOWN INDICATION
     Dosage: 9.5MG/24H 18 MG DAILY RIVASTIGMINE BASE PATCH 10 (CM2)
     Route: 062

REACTIONS (3)
  - Application site swelling [Unknown]
  - Application site pruritus [Unknown]
  - Application site erythema [Unknown]
